FAERS Safety Report 6796356-5 (Version None)
Quarter: 2010Q2

REPORT INFORMATION
  Report Type: 
  Country: None (occurrence: None)
  Receive Date: 20100622
  Receipt Date: 20100608
  Transmission Date: 20101027
  Serious: Yes (Hospitalization)
  Sender: FDA-Public Use
  Company Number: 609510

PATIENT
  Age: 20 Year
  Sex: Female

DRUGS (1)
  1. PROPOFOL [Suspect]
     Indication: ANAESTHESIA

REACTIONS (2)
  - CEREBROVASCULAR ACCIDENT [None]
  - LOSS OF CONSCIOUSNESS [None]
